FAERS Safety Report 7680345-2 (Version None)
Quarter: 2011Q3

REPORT INFORMATION
  Report Type: 
  Country: None (occurrence: None)
  Receive Date: 20110812
  Receipt Date: 20110811
  Transmission Date: 20111222
  Serious: Yes (Hospitalization)
  Sender: FDA-Public Use
  Company Number: NL-GLAXOSMITHKLINE-B0712640B

PATIENT
  Sex: Female
  Weight: 70 kg

DRUGS (2)
  1. DOCETAXEL [Suspect]
     Indication: NEOPLASM MALIGNANT
     Dosage: 50MGM2 PER DAY
     Route: 042
     Dates: start: 20110331
  2. PAZOPANIB [Suspect]
     Indication: NEOPLASM MALIGNANT
     Dosage: 600MG PER DAY
     Route: 048
     Dates: start: 20110324

REACTIONS (1)
  - MALAISE [None]
